FAERS Safety Report 24528392 (Version 1)
Quarter: 2024Q4

REPORT INFORMATION
  Report Type: Spontaneous
  Country: US (occurrence: US)
  Receive Date: 20241021
  Receipt Date: 20241021
  Transmission Date: 20250115
  Serious: Yes (Other)
  Sender: SANOFI AVENTIS
  Company Number: US-SANOFI-02244178

PATIENT
  Sex: Female

DRUGS (2)
  1. TAXOTERE [Suspect]
     Active Substance: DOCETAXEL
     Indication: HER2 positive breast cancer
     Dosage: UNK UNK, Q3W (9 TREATMENTS)
     Dates: start: 200804, end: 2009
  2. HERCEPTIN [Concomitant]
     Active Substance: TRASTUZUMAB
     Indication: HER2 positive breast cancer
     Dosage: UNK UNK, QW

REACTIONS (11)
  - Dry age-related macular degeneration [Not Recovered/Not Resolved]
  - Cardiac failure [Not Recovered/Not Resolved]
  - Loss of consciousness [Unknown]
  - Osteoporosis [Not Recovered/Not Resolved]
  - Rotator cuff syndrome [Not Recovered/Not Resolved]
  - Mouth haemorrhage [Unknown]
  - Malaise [Not Recovered/Not Resolved]
  - Feeling abnormal [Unknown]
  - Nausea [Unknown]
  - Lacrimation increased [Not Recovered/Not Resolved]
  - Epistaxis [Unknown]

NARRATIVE: CASE EVENT DATE: 20240901
